FAERS Safety Report 8289530-2 (Version None)
Quarter: 2012Q2

REPORT INFORMATION
  Report Type: 
  Country: None (occurrence: None)
  Receive Date: 20120417
  Receipt Date: 20120409
  Transmission Date: 20120825
  Serious: Yes (Other)
  Sender: FDA-Public Use
  Company Number: US-PFIZER INC-2012090204

PATIENT
  Sex: Female

DRUGS (1)
  1. LO/OVRAL-28 [Suspect]
     Indication: CONTRACEPTION
     Dosage: UNK
     Dates: end: 20120224

REACTIONS (11)
  - ASTHMA [None]
  - HYPERSOMNIA [None]
  - CARDIAC FLUTTER [None]
  - PRODUCT QUALITY ISSUE [None]
  - BLOOD PRESSURE DIASTOLIC INCREASED [None]
  - PANIC ATTACK [None]
  - BODY TEMPERATURE DECREASED [None]
  - CHEST DISCOMFORT [None]
  - TREMOR [None]
  - APHASIA [None]
  - THINKING ABNORMAL [None]
